FAERS Safety Report 8399793-0 (Version None)
Quarter: 2012Q1

REPORT INFORMATION
  Report Type: 
  Country: None (occurrence: None)
  Receive Date: 20120323
  Receipt Date: 20110510
  Transmission Date: 20120608
  Serious: Yes (Hospitalization)
  Sender: FDA-Public Use
  Company Number: 163-21880-11011151

PATIENT
  Age: 70 Year
  Sex: Male

DRUGS (25)
  1. LIQUIFILM TEARS (LIQUIFILM TEARS) [Concomitant]
  2. DECADRON [Concomitant]
  3. LEVEMIR [Concomitant]
  4. AVODART [Concomitant]
  5. RISPERDAL [Concomitant]
  6. SERTRALINE HYDROCHLORIDE [Concomitant]
  7. TRICOR [Concomitant]
  8. DEPAKOTE [Concomitant]
  9. REVLIMID [Suspect]
     Indication: MULTIPLE MYELOMA
     Dosage: 25 MG, 1 IN 1 D, PO
     Route: 048
     Dates: start: 20101231, end: 20110120
  10. NOVOLOG [Concomitant]
  11. PLAVIX [Concomitant]
  12. GABAPENTIN [Concomitant]
  13. TRAVATAN [Concomitant]
  14. ACTOS [Concomitant]
  15. ZYRTEC [Concomitant]
  16. OMEPRAZOLE [Concomitant]
  17. TRAMADOL HCL [Concomitant]
  18. INTEGRA PLUS (INTEGRA VITAMINE B+C) [Concomitant]
  19. ASPIRIN [Concomitant]
  20. ARICEPT [Concomitant]
  21. FLOMAX [Concomitant]
  22. LORTAB [Concomitant]
  23. ISOSORBIDE (ISOSORBIDE) [Concomitant]
  24. METFFORMIN HYDROCHLORIDE [Concomitant]
  25. AMBIEN [Concomitant]

REACTIONS (2)
  - ASTHENIA [None]
  - ANAEMIA [None]
